FAERS Safety Report 8095406-6 (Version None)
Quarter: 2012Q1

REPORT INFORMATION
  Report Type: 
  Country: None (occurrence: None)
  Receive Date: 20120131
  Receipt Date: 20120125
  Transmission Date: 20120608
  Serious: Yes (Other)
  Sender: FDA-Public Use
  Company Number: JP-PFIZER INC-2011260246

PATIENT
  Age: 25 Year
  Sex: Male

DRUGS (5)
  1. ZOLOFT [Suspect]
     Dosage: 50 MG, 1X/DAY
     Route: 048
     Dates: start: 20100526, end: 20110321
  2. ZOLOFT [Suspect]
     Dosage: 25 MG, 1X/DAY
     Route: 048
     Dates: start: 20110322, end: 20110516
  3. AMOXAPINE [Suspect]
     Indication: DEPRESSION
     Dosage: 10 MG, 1X/DAY
     Route: 048
     Dates: start: 20090101, end: 20100510
  4. ZOLOFT [Suspect]
     Indication: DEPRESSION
     Dosage: 25 MG, 2X/DAY
     Route: 048
     Dates: start: 20090101, end: 20100525
  5. AMOXAPINE [Suspect]
     Dosage: 20 MG, 2X/DAY
     Route: 048
     Dates: start: 20100511, end: 20100526

REACTIONS (1)
  - INTRAOCULAR PRESSURE INCREASED [None]
